FAERS Safety Report 7780708-0 (Version None)
Quarter: 2011Q3

REPORT INFORMATION
  Report Type: 
  Country: None (occurrence: None)
  Receive Date: 20110927
  Receipt Date: 20110615
  Transmission Date: 20111222
  Serious: No
  Sender: FDA-Public Use
  Company Number: US-BRISTOL-MYERS SQUIBB COMPANY-15671225

PATIENT
  Age: 82 Year
  Sex: Female

DRUGS (2)
  1. ASPIRIN [Concomitant]
  2. AVAPRO [Suspect]
     Dosage: TAKING BETWEEN 10 TO 15 YEARS.1DF:SPLIT THE PILL IN HALF ONE IN MORNING ONE IN THE EVENING

REACTIONS (1)
  - PRURITUS GENERALISED [None]
